FAERS Safety Report 5532760-0 (Version None)
Quarter: 2007Q4

REPORT INFORMATION
  Report Type: 
  Country: None (occurrence: None)
  Receive Date: 20071204
  Receipt Date: 20071128
  Transmission Date: 20080405
  Serious: Yes (Other)
  Sender: FDA-Public Use
  Company Number: PHEH2007US15304

PATIENT
  Age: 62 Year
  Sex: Female

DRUGS (3)
  1. TRICOR [Concomitant]
  2. LESCOL XL [Suspect]
     Dosage: 80 MG, UNK
     Route: 048
  3. LESCOL XL [Suspect]
     Dosage: 80 MG, UNK
     Route: 048
     Dates: start: 20071012, end: 20071112

REACTIONS (3)
  - DEPRESSED MOOD [None]
  - INSOMNIA [None]
  - SUICIDAL BEHAVIOUR [None]
